FAERS Safety Report 11814454 (Version 10)
Quarter: 2017Q4

REPORT INFORMATION
  Report Type: Report from Study
  Country: US (occurrence: US)
  Receive Date: 20151209
  Receipt Date: 20171109
  Transmission Date: 20180320
  Serious: Yes (Hospitalization, Congenital Anomaly, Other)
  Sender: FDA-Public Use
  Company Number: US-JNJFOC-20151203448

PATIENT
  Age: 0 Day
  Sex: Male

DRUGS (2)
  1. USTEKINUMAB [Suspect]
     Active Substance: USTEKINUMAB
     Indication: PSORIATIC ARTHROPATHY
     Dosage: PARENT^S DOSING
     Route: 064
     Dates: start: 200911
  2. USTEKINUMAB [Suspect]
     Active Substance: USTEKINUMAB
     Indication: PSORIASIS
     Dosage: PARENT^S DOSING
     Route: 064
     Dates: start: 200911

REACTIONS (6)
  - Congenital absence of cranial vault [Unknown]
  - Foetal exposure during pregnancy [Recovered/Resolved]
  - Cleft palate [Recovered/Resolved with Sequelae]
  - Premature baby [Not Recovered/Not Resolved]
  - Ankyloglossia congenital [Unknown]
  - Craniosynostosis [Recovered/Resolved]

NARRATIVE: CASE EVENT DATE: 20151021
